FAERS Safety Report 5370263-7 (Version None)
Quarter: 2007Q2

REPORT INFORMATION
  Report Type: 
  Country: None (occurrence: None)
  Receive Date: 20070625
  Receipt Date: 20070625
  Transmission Date: 20071010
  Serious: Yes (Death)
  Sender: FDA-Public Use
  Company Number: None

PATIENT
  Age: 75 Year
  Sex: Male
  Weight: 91.173 kg

DRUGS (3)
  1. ALIMTA [Suspect]
     Indication: TONGUE NEOPLASM MALIGNANT STAGE UNSPECIFIED
     Dosage: 500MG/M2
     Dates: start: 20070424, end: 20070605
  2. ERBITUX [Suspect]
     Indication: TONGUE NEOPLASM MALIGNANT STAGE UNSPECIFIED
     Dosage: 250 MG/M2
     Dates: start: 20070417, end: 20070605
  3. RAD. THERAPY [Concomitant]

REACTIONS (4)
  - ANAEMIA [None]
  - DUODENAL ULCER HAEMORRHAGE [None]
  - NEUTROPHIL COUNT ABNORMAL [None]
  - THROMBOCYTOPENIA [None]
